FAERS Safety Report 5996762-2 (Version None)
Quarter: 2008Q4

REPORT INFORMATION
  Report Type: 
  Country: None (occurrence: None)
  Receive Date: 20081212
  Receipt Date: 20081023
  Transmission Date: 20090506
  Serious: No
  Sender: FDA-Public Use
  Company Number: US-ABBOTT-08P-163-0483683-00

PATIENT
  Sex: Female
  Weight: 52.21 kg

DRUGS (6)
  1. HUMIRA [Suspect]
     Indication: PSORIASIS
     Dates: start: 20080523
  2. HORMONE REPLACEMENT [Concomitant]
     Indication: DRUG USE FOR UNKNOWN INDICATION
  3. ATORVASTATIN CALCIUM [Concomitant]
     Indication: BLOOD CHOLESTEROL INCREASED
     Route: 048
  4. ALPRAZOLAM [Concomitant]
     Indication: DRUG USE FOR UNKNOWN INDICATION
  5. KLIOGEST [Concomitant]
     Indication: HORMONE REPLACEMENT THERAPY
     Route: 061
  6. ZITHROMAX [Concomitant]
     Indication: SINUSITIS
     Route: 048
     Dates: start: 20081023

REACTIONS (6)
  - CHEST DISCOMFORT [None]
  - COUGH [None]
  - LARYNGITIS [None]
  - SINUS CONGESTION [None]
  - SINUSITIS [None]
  - TOOTHACHE [None]
